FAERS Safety Report 15759950 (Version 1)
Quarter: 2018Q4

REPORT INFORMATION
  Report Type: Spontaneous
  Country: GB (occurrence: GB)
  Receive Date: 20181226
  Receipt Date: 20181226
  Transmission Date: 20190205
  Serious: Yes (Other)
  Sender: FDA-Public Use
  Company Number: GB-ACCORD-097898

PATIENT

DRUGS (1)
  1. CARBOPLATIN. [Suspect]
     Active Substance: CARBOPLATIN
     Indication: CHEMOTHERAPY
     Route: 042

REACTIONS (5)
  - Abdominal pain [Unknown]
  - Flushing [Unknown]
  - Nausea [Unknown]
  - Unresponsive to stimuli [Unknown]
  - Hypotonia [Unknown]

NARRATIVE: CASE EVENT DATE: 20170428
